FAERS Safety Report 6293019-X (Version None)
Quarter: 2009Q3

REPORT INFORMATION
  Report Type: 
  Country: None (occurrence: None)
  Receive Date: 20090731
  Receipt Date: 20090728
  Transmission Date: 20100115
  Serious: Yes (Hospitalization)
  Sender: FDA-Public Use
  Company Number: US-BRISTOL-MYERS SQUIBB COMPANY-14672828

PATIENT
  Age: 75 Year
  Sex: Male
  Weight: 71 kg

DRUGS (3)
  1. CARBOPLATIN [Suspect]
     Indication: NON-SMALL CELL LUNG CANCER
     Dosage: ARM A:WEEKLY CARBOPLATIN AUC 2
     Dates: start: 20090609, end: 20090714
  2. TAXOL [Suspect]
     Indication: NON-SMALL CELL LUNG CANCER
     Dosage: ARM A: PACLITAXEL 45MG/M2
     Dates: start: 20090609, end: 20090714
  3. RADIATION THERAPY [Suspect]
     Indication: NON-SMALL CELL LUNG CANCER
     Dosage: 1DF=4000GY NO OF FRACTIONS:20 NO OF ELAPSED DAYS:38
     Dates: start: 20090617, end: 20090617

REACTIONS (4)
  - ANXIETY [None]
  - CHRONIC OBSTRUCTIVE PULMONARY DISEASE [None]
  - DECREASED APPETITE [None]
  - PNEUMONIA [None]
